FAERS Safety Report 18152209 (Version 1)
Quarter: 2020Q3

REPORT INFORMATION
  Report Type: Report from Study
  Country: FI (occurrence: FI)
  Receive Date: 20200814
  Receipt Date: 20200814
  Transmission Date: 20201103
  Serious: Yes (Other)
  Sender: FDA-Public Use
  Company Number: FI-MYLANLABS-2020M1071827

PATIENT
  Age: 25 Year
  Sex: Female

DRUGS (1)
  1. LEPONEX [Suspect]
     Active Substance: CLOZAPINE
     Indication: PRODUCT USED FOR UNKNOWN INDICATION
     Dosage: UNK
     Dates: start: 20200724

REACTIONS (6)
  - Pneumonia [Unknown]
  - C-reactive protein increased [Not Recovered/Not Resolved]
  - Troponin I increased [Unknown]
  - Chest pain [Unknown]
  - Pyrexia [Unknown]
  - Myocarditis [Unknown]

NARRATIVE: CASE EVENT DATE: 202008
